FAERS Safety Report 8209314-0 (Version None)
Quarter: 2012Q1

REPORT INFORMATION
  Report Type: 
  Country: None (occurrence: None)
  Receive Date: 20120314
  Receipt Date: 20120306
  Transmission Date: 20120608
  Serious: Yes (Other)
  Sender: FDA-Public Use
  Company Number: US-BAYER-2010-002187

PATIENT
  Age: 19 Year
  Sex: Female
  Weight: 82 kg

DRUGS (1)
  1. YASMIN [Suspect]
     Dosage: UNK
     Route: 048
     Dates: start: 20051119, end: 20060301

REACTIONS (2)
  - INJURY [None]
  - PULMONARY EMBOLISM [None]
